FAERS Safety Report 25092326 (Version 1)
Quarter: 2025Q1

REPORT INFORMATION
  Report Type: Spontaneous
  Country: FR (occurrence: FR)
  Receive Date: 20250319
  Receipt Date: 20250319
  Transmission Date: 20250409
  Serious: Yes (Hospitalization)
  Sender: CHEPLAPHARM
  Company Number: None

PATIENT
  Age: 67 Year
  Sex: Male
  Weight: 140 kg

DRUGS (4)
  1. HYDROXYUREA [Suspect]
     Active Substance: HYDROXYUREA
     Indication: Polycythaemia
     Dosage: ONE CAPSULE MORNING AND EVENING?DAILY DOSE: 2 DOSAGE FORM
     Route: 048
     Dates: start: 2024
  2. COUMADIN [Suspect]
     Active Substance: WARFARIN SODIUM
     Indication: Atrial fibrillation
     Dosage: SCORED TABLET; TWO TABLETS IN THE EVENING?DAILY DOSE: 2 DOSAGE FORM
     Route: 048
  3. ESIDREX [Suspect]
     Active Substance: HYDROCHLOROTHIAZIDE
     Indication: Product used for unknown indication
     Dosage: ONE TABLET IN THE MORNING?DAILY DOSE: 1 DOSAGE FORM
     Route: 048
  4. GLYCOPYRRONIUM\INDACATEROL [Concomitant]
     Active Substance: GLYCOPYRRONIUM\INDACATEROL
     Indication: Chronic obstructive pulmonary disease
     Dosage: POWDER FOR INHALATION CAPSULES; ONE PUFF MORNING AND EVENING?DAILY DOSE: 2 DOSAGE FORM
     Route: 048

REACTIONS (4)
  - Hepatitis cholestatic [Recovering/Resolving]
  - Jaundice [Recovering/Resolving]
  - Lithiasis [Unknown]
  - Inflammation [Unknown]

NARRATIVE: CASE EVENT DATE: 20250211
